FAERS Safety Report 6460142-6 (Version None)
Quarter: 2009Q4

REPORT INFORMATION
  Report Type: 
  Country: None (occurrence: None)
  Receive Date: 20091129
  Receipt Date: 20091124
  Transmission Date: 20100525
  Serious: Yes (Other)
  Sender: FDA-Public Use
  Company Number: CA-ALLERGAN-0913401US

PATIENT
  Age: 68 Year
  Sex: Female

DRUGS (6)
  1. BOTULINUM TOXIN TYPE A [Suspect]
     Indication: TORTICOLLIS
     Dosage: UNK, SINGLE
     Dates: start: 20090326, end: 20090326
  2. BOTULINUM TOXIN TYPE A [Suspect]
     Dosage: 300 UNITS, SINGLE
     Dates: start: 20061201, end: 20061201
  3. BOTULINUM TOXIN TYPE A [Suspect]
     Dosage: UNK, SINGLE
     Dates: start: 20080630, end: 20080630
  4. BOTULINUM TOXIN TYPE A [Suspect]
     Dosage: UNK
     Dates: start: 20080925, end: 20080925
  5. BOTULINUM TOXIN TYPE A [Suspect]
     Dosage: UNK
     Dates: start: 20090114, end: 20090114
  6. BOTULINUM TOXIN TYPE A [Suspect]
     Dosage: 200 UNITS, SINGLE
     Dates: start: 20090622, end: 20090622

REACTIONS (3)
  - DYSPHAGIA [None]
  - MUSCLE TIGHTNESS [None]
  - MUSCULAR WEAKNESS [None]
